FAERS Safety Report 19593069 (Version 3)
Quarter: 2021Q3

REPORT INFORMATION
  Report Type: Not Available
  Country: JP (occurrence: JP)
  Receive Date: 20210722
  Receipt Date: 20210813
  Transmission Date: 20211014
  Serious: Yes (Death)
  Sender: FDA-Public Use
  Company Number: JP-JNJFOC-20210733704

PATIENT
  Age: 77 Year
  Sex: Male
  Weight: 81.9 kg

DRUGS (16)
  1. PREDONINE [Concomitant]
     Active Substance: PREDNISOLONE
     Route: 048
     Dates: start: 20210517, end: 20210630
  2. CEFTRIAXONE SODIUM HYDRATE [Concomitant]
     Active Substance: CEFTRIAXONE SODIUM
     Dosage: DOSE UNKNOWN
     Route: 041
     Dates: start: 20210625, end: 20210625
  3. OXYCONTIN [Concomitant]
     Active Substance: OXYCODONE HYDROCHLORIDE
     Route: 048
     Dates: start: 20210524, end: 20210622
  4. BUFFERIN [Concomitant]
     Active Substance: ASPIRIN
     Route: 048
     Dates: end: 20210703
  5. SYMPROIC [Concomitant]
     Active Substance: NALDEMEDINE
     Route: 048
     Dates: start: 20210524, end: 20210622
  6. URSODEOXYCHOLIC ACID [Concomitant]
     Active Substance: URSODIOL
     Route: 048
     Dates: start: 20210703, end: 20210703
  7. TELMISARTAN. [Concomitant]
     Active Substance: TELMISARTAN
     Route: 048
     Dates: end: 20210627
  8. LOXOPROFEN [Concomitant]
     Active Substance: LOXOPROFEN
     Route: 048
     Dates: start: 20210322, end: 20210628
  9. ZYTIGA [Suspect]
     Active Substance: ABIRATERONE ACETATE
     Indication: HORMONE-REFRACTORY PROSTATE CANCER
     Route: 048
     Dates: start: 20210517, end: 20210627
  10. LANSOPRAZOLE. [Concomitant]
     Active Substance: LANSOPRAZOLE
     Route: 048
     Dates: start: 20210517, end: 20210703
  11. MAGMITT [Concomitant]
     Active Substance: MAGNESIUM OXIDE
     Route: 048
     Dates: end: 20210629
  12. SULBACILLIN [Concomitant]
     Active Substance: AMPICILLIN SODIUM\SULBACTAM SODIUM
     Dosage: DOSE UNKNOWN
     Route: 041
     Dates: start: 20210626, end: 20210628
  13. AMITIZA [Concomitant]
     Active Substance: LUBIPROSTONE
     Route: 048
     Dates: start: 20210531, end: 20210625
  14. AMLODIPINE [Concomitant]
     Active Substance: AMLODIPINE BESYLATE
     Route: 048
     Dates: end: 20210627
  15. CEFAZOLIN SODIUM. [Concomitant]
     Active Substance: CEFAZOLIN SODIUM
     Dosage: DOSE UNKNOWN
     Route: 041
     Dates: start: 20210528, end: 20210528
  16. VANCOMYCIN [Concomitant]
     Active Substance: VANCOMYCIN
     Dosage: DOSE UNKNOWN
     Route: 041
     Dates: start: 20210625, end: 20210628

REACTIONS (2)
  - Renal disorder [Fatal]
  - Drug-induced liver injury [Fatal]

NARRATIVE: CASE EVENT DATE: 20210628
